FAERS Safety Report 9278676 (Version 2)
Quarter: 2013Q4

REPORT INFORMATION
  Report Type: Spontaneous
  Country: US (occurrence: US)
  Receive Date: 20130508
  Receipt Date: 20131112
  Transmission Date: 20140711
  Serious: No
  Sender: FDA-Public Use
  Company Number: US-PFIZER INC-2013139047

PATIENT
  Age: 57 Year
  Sex: Female

DRUGS (4)
  1. SEPTRA [Suspect]
     Dosage: UNK
  2. PROPANOLOL HCL [Suspect]
     Dosage: UNK
  3. PROPANOLOL HCL [Suspect]
     Dosage: UNK
  4. BACTRIM [Suspect]
     Dosage: UNK

REACTIONS (1)
  - Drug hypersensitivity [Unknown]
